FAERS Safety Report 7031460-8 (Version None)
Quarter: 2010Q4

REPORT INFORMATION
  Report Type: 
  Country: None (occurrence: None)
  Receive Date: 20101006
  Receipt Date: 20100928
  Transmission Date: 20110411
  Serious: Yes (Other)
  Sender: FDA-Public Use
  Company Number: US-PFIZER INC-2010123410

PATIENT
  Sex: Female
  Weight: 79.365 kg

DRUGS (5)
  1. CHANTIX [Suspect]
     Indication: SMOKING CESSATION THERAPY
     Dosage: 1 MG, 2X/DAY
     Route: 048
     Dates: start: 20100801, end: 20100824
  2. CYMBALTA [Concomitant]
     Indication: DEPRESSION
     Dosage: UNK MG, 1X/DAY
     Route: 048
  3. METHADONE [Concomitant]
     Indication: PAIN
     Dosage: 10 MG, 4X/DAY
  4. LISINOPRIL [Concomitant]
     Indication: HYPERTENSION
     Dosage: 20 MG, 1X/DAY
  5. ALPRAZOLAM [Concomitant]
     Indication: ANXIETY
     Dosage: 25 MG, AS NEEDED

REACTIONS (2)
  - DEPRESSION [None]
  - HYPERTENSION [None]
